FAERS Safety Report 9817871 (Version 1)
Quarter: 2014Q1

REPORT INFORMATION
  Report Type: Spontaneous
  Country: IN (occurrence: IN)
  Receive Date: 20140115
  Receipt Date: 20140115
  Transmission Date: 20141002
  Serious: Yes (Hospitalization)
  Sender: FDA-Public Use
  Company Number: PHHY2014IN001882

PATIENT
  Age: 28 Year
  Sex: Male

DRUGS (11)
  1. CLOZAPINE [Suspect]
     Indication: SCHIZOPHRENIA, CATATONIC TYPE
     Dosage: 25 MG, UNK
  2. CLOZAPINE [Suspect]
     Indication: EXTRAPYRAMIDAL DISORDER
     Dosage: 12.5 UNK, UNK
  3. CLOZAPINE [Suspect]
     Indication: PSYCHOTIC DISORDER
  4. TRIHEXYPHENIDYL [Suspect]
     Dosage: 6 MG, UNK
  5. DIAZEPAM [Suspect]
     Dosage: 5 MG, UNK
  6. VALPROIC ACID [Suspect]
  7. BACLOFEN [Suspect]
     Indication: MUSCLE RELAXANT THERAPY
     Dosage: 30 MG, UNK
  8. BACLOFEN [Suspect]
     Dosage: 10 MG, FOUR TIMES A DAY
  9. MAGNESIUM SULFATE INJ [Suspect]
     Dosage: 4 MG, A DAY
  10. BROMOCRIPTINE [Suspect]
     Dosage: 2.5 MG, TID
  11. BROMOCRIPTINE [Suspect]
     Dosage: 5 MG, TID

REACTIONS (6)
  - Neuroleptic malignant syndrome [Unknown]
  - Confusional state [Unknown]
  - Blood creatine phosphokinase increased [Recovered/Resolved]
  - Muscle rigidity [Unknown]
  - Urinary incontinence [Unknown]
  - Faecal incontinence [Unknown]
